FAERS Safety Report 15991924 (Version 1)
Quarter: 2019Q1

REPORT INFORMATION
  Report Type: Spontaneous
  Country: US (occurrence: US)
  Receive Date: 20190221
  Receipt Date: 20190221
  Transmission Date: 20190418
  Serious: Yes (Hospitalization)
  Sender: FDA-Public Use
  Company Number: US-CASPER PHARMA LLC-2018US000241

PATIENT
  Age: 72 Year
  Sex: Male
  Weight: 37.85 kg

DRUGS (3)
  1. NITROFURANTOIN. [Suspect]
     Active Substance: NITROFURANTOIN
     Indication: URINARY TRACT INFECTION
  2. DURVALUMAB. [Concomitant]
     Active Substance: DURVALUMAB
     Indication: TRANSITIONAL CELL CARCINOMA
     Dosage: 10 MILLIGRAM/KILOGRAM
     Route: 042
     Dates: start: 20170915, end: 20180119
  3. EPACADOSTAT [Concomitant]
     Active Substance: EPACADOSTAT
     Indication: TRANSITIONAL CELL CARCINOMA
     Dosage: 100 MILLIGRAM
     Route: 048
     Dates: start: 20170914, end: 20180119

REACTIONS (1)
  - Rash maculo-papular [Recovered/Resolved]

NARRATIVE: CASE EVENT DATE: 20180119
